FAERS Safety Report 24346329 (Version 1)
Quarter: 2024Q3

REPORT INFORMATION
  Report Type: Spontaneous
  Country: IN (occurrence: IN)
  Receive Date: 20240921
  Receipt Date: 20240921
  Transmission Date: 20241017
  Serious: Yes (Death)
  Sender: ROCHE
  Company Number: IN-ROCHE-10000081926

PATIENT
  Age: 63 Year
  Sex: Male

DRUGS (1)
  1. TECENTRIQ [Suspect]
     Active Substance: ATEZOLIZUMAB
     Indication: Neuroendocrine carcinoma
     Route: 042
     Dates: start: 20240405

REACTIONS (2)
  - Illness [Fatal]
  - Metastases to stomach [Fatal]
